FAERS Safety Report 6913390-2 (Version None)
Quarter: 2010Q3

REPORT INFORMATION
  Report Type: 
  Country: None (occurrence: None)
  Receive Date: 20100809
  Receipt Date: 20100802
  Transmission Date: 20110219
  Serious: Yes (Other)
  Sender: FDA-Public Use
  Company Number: US-BAYER-201025880NA

PATIENT
  Age: 38 Year
  Sex: Female
  Weight: 72 kg

DRUGS (2)
  1. MAGNEVIST [Suspect]
     Indication: MUSCULOSKELETAL PAIN
     Dosage: TOTAL DAILY DOSE: 4 ML
     Route: 042
     Dates: start: 20100517, end: 20100517
  2. IBUPROFEN [Concomitant]

REACTIONS (10)
  - ASTHENIA [None]
  - DISCOMFORT [None]
  - DISTURBANCE IN ATTENTION [None]
  - DYSGEUSIA [None]
  - FEELING ABNORMAL [None]
  - FEELING HOT [None]
  - MENTAL STATUS CHANGES [None]
  - NEUROLOGICAL EXAMINATION ABNORMAL [None]
  - NEUROLOGICAL SYMPTOM [None]
  - PAIN [None]
